FAERS Safety Report 4854410-9 (Version None)
Quarter: 2005Q4

REPORT INFORMATION
  Report Type: 
  Country: None (occurrence: None)
  Receive Date: 20051214
  Receipt Date: 20051214
  Transmission Date: 20060501
  Serious: Yes (Hospitalization, Other)
  Sender: FDA-Public Use
  Company Number: None

PATIENT
  Sex: Female
  Weight: 99.7 kg

DRUGS (5)
  1. MELPHALAN [Suspect]
     Indication: MULTIPLE MYELOMA
     Dosage: SEE IMAGE
     Route: 042
     Dates: start: 20051203, end: 20051203
  2. PRINIVIL [Concomitant]
  3. DYAZIDE [Concomitant]
  4. ACYLOVIR [Concomitant]
  5. DIFLUCAN [Concomitant]

REACTIONS (2)
  - RENAL FAILURE ACUTE [None]
  - URINE OUTPUT DECREASED [None]
